FAERS Safety Report 9004261 (Version 1)
Quarter: 2013Q1

REPORT INFORMATION
  Report Type: Spontaneous
  Country: FR (occurrence: FR)
  Receive Date: 20130108
  Receipt Date: 20130108
  Transmission Date: 20140127
  Serious: Yes (Death)
  Sender: FDA-Public Use
  Company Number: FR-ROCHE-1176935

PATIENT
  Age: 80 Year
  Sex: Male

DRUGS (9)
  1. VALIUM [Suspect]
     Indication: PRODUCT USED FOR UNKNOWN INDICATION
     Route: 048
  2. VALIUM [Suspect]
     Route: 048
     Dates: start: 20121210, end: 20121214
  3. KARDEGIC [Concomitant]
  4. SELOKEN [Concomitant]
  5. LIPANTHYL [Concomitant]
  6. TRANSIPEG (FRANCE) [Concomitant]
  7. ORELOX [Concomitant]
  8. UVEDOSE [Concomitant]
  9. REMINYL [Concomitant]

REACTIONS (1)
  - Coma [Fatal]
